FAERS Safety Report 4698528-2 (Version None)
Quarter: 2005Q2

REPORT INFORMATION
  Report Type: 
  Country: None (occurrence: None)
  Receive Date: 20050622
  Receipt Date: 20050609
  Transmission Date: 20051028
  Serious: Yes (Hospitalization, Other)
  Sender: FDA-Public Use
  Company Number: 2005087496

PATIENT
  Sex: Female
  Weight: 59.8748 kg

DRUGS (4)
  1. BEXTRA [Suspect]
     Indication: BACK PAIN
     Dosage: 10 MG (10 MG, 1 IN 1 D) ORAL
     Route: 048
     Dates: start: 20020101
  2. CELEBREX [Suspect]
     Indication: BACK PAIN
     Dosage: 200 MG (200 MG, 1 IN 1 D) ORAL
     Route: 048
     Dates: start: 20011203, end: 20020101
  3. LOPRESSOR [Concomitant]
  4. VITAMIN B-12 [Concomitant]

REACTIONS (10)
  - BACK PAIN [None]
  - CONDITION AGGRAVATED [None]
  - DRUG EFFECT DECREASED [None]
  - FEAR [None]
  - KNEE ARTHROPLASTY [None]
  - LIMB INJURY [None]
  - LOCALISED INFECTION [None]
  - RASH ERYTHEMATOUS [None]
  - RASH MACULAR [None]
  - STOMACH DISCOMFORT [None]
